FAERS Safety Report 4748414-4 (Version None)
Quarter: 2005Q3

REPORT INFORMATION
  Report Type: 
  Country: None (occurrence: None)
  Receive Date: 20050818
  Receipt Date: 20050719
  Transmission Date: 20060218
  Serious: Yes (Death)
  Sender: FDA-Public Use
  Company Number: 1879

PATIENT
  Age: 57 Year
  Sex: Female

DRUGS (5)
  1. AVINZA [Suspect]
     Indication: INTERVERTEBRAL DISC PROTRUSION
     Dosage: 270 MG QD PO
     Route: 048
     Dates: start: 20050401, end: 20050401
  2. AVINZA [Suspect]
     Indication: PAIN
     Dosage: 270 MG QD PO
     Route: 048
     Dates: start: 20050401, end: 20050401
  3. HYDROCODONE BITARTRATE + ACETAMINOPHEN [Concomitant]
  4. MEDICATIONS FOR HYPERTENSION AND DIABETES [Concomitant]
  5. ANXIOLYTIC MEDICATION [Concomitant]

REACTIONS (2)
  - CONSTIPATION [None]
  - REFUSAL OF TREATMENT BY PATIENT [None]
